FAERS Safety Report 9520696 (Version 3)
Quarter: 2013Q4

REPORT INFORMATION
  Report Type: Spontaneous
  Country: JP (occurrence: JP)
  Receive Date: 20130913
  Receipt Date: 20131202
  Transmission Date: 20140711
  Serious: Yes (Disabling)
  Sender: FDA-Public Use
  Company Number: JP-AMGEN-JPNSP2013064190

PATIENT
  Age: 70 Year
  Sex: Female
  Weight: 43 kg

DRUGS (19)
  1. RANMARK [Suspect]
     Indication: PLASMA CELL MYELOMA
     Dosage: 120 MG, QD
     Route: 058
     Dates: start: 20120522, end: 20130820
  2. RANMARK [Suspect]
     Indication: PLASMA CELL MYELOMA
  3. THALED [Concomitant]
     Indication: PLASMA CELL MYELOMA
     Route: 048
     Dates: start: 20130108
  4. THALED [Concomitant]
     Indication: PLASMA CELL MYELOMA
  5. ONEALFA [Concomitant]
     Indication: OSTEOPOROSIS
     Dosage: 1 MUG, BID
     Route: 048
     Dates: start: 20120522
  6. MYSLEE [Concomitant]
     Indication: INSOMNIA
     Route: 048
     Dates: start: 2007
  7. DEPAS [Concomitant]
     Indication: ANXIETY DISORDER
     Route: 048
     Dates: start: 2007
  8. DEPAS [Concomitant]
     Indication: ANXIETY DISORDER
  9. PREDONINE                          /00016201/ [Concomitant]
     Indication: PLASMA CELL MYELOMA
     Route: 048
     Dates: start: 2007
  10. BAYASPIRIN [Concomitant]
     Indication: DEEP VEIN THROMBOSIS
     Route: 048
     Dates: start: 20130108
  11. LASIX                              /00032601/ [Concomitant]
     Indication: CARDIAC FAILURE
     Route: 048
  12. BIOFERMIN                          /01617201/ [Concomitant]
     Indication: ENTEROCOLITIS
     Dosage: 1G, TID, POW
     Route: 048
     Dates: start: 2007
  13. MAGMITT [Concomitant]
     Indication: CONSTIPATION
     Route: 048
  14. MUCOSTA [Concomitant]
     Indication: GASTRITIS
     Route: 048
  15. PANTOSIN [Concomitant]
     Indication: CONSTIPATION
     Route: 048
  16. PARIET [Concomitant]
     Indication: GASTRIC ULCER
     Route: 048
  17. LIPITOR [Concomitant]
     Indication: HYPERLIPIDAEMIA
     Route: 048
  18. DAIKENTYUTO [Concomitant]
     Indication: CONSTIPATION
     Route: 048
  19. ZOMETA [Concomitant]
     Route: 042
     Dates: start: 2010, end: 201206

REACTIONS (1)
  - Osteonecrosis of jaw [Not Recovered/Not Resolved]
